FAERS Safety Report 25196177 (Version 1)
Quarter: 2025Q2

REPORT INFORMATION
  Report Type: Spontaneous
  Country: ES (occurrence: ES)
  Receive Date: 20250415
  Receipt Date: 20250415
  Transmission Date: 20250716
  Serious: Yes (Other)
  Sender: ABBVIE
  Company Number: None

PATIENT
  Age: 27 Year
  Sex: Female

DRUGS (5)
  1. SKYRIZI [Suspect]
     Active Substance: RISANKIZUMAB-RZAA
     Indication: Crohn^s disease
     Route: 058
     Dates: start: 20250312, end: 20250312
  2. SKYRIZI [Suspect]
     Active Substance: RISANKIZUMAB-RZAA
     Indication: Crohn^s disease
     Route: 042
     Dates: start: 20250211, end: 20250211
  3. AZATHIOPRINE [Suspect]
     Active Substance: AZATHIOPRINE
     Indication: Crohn^s disease
     Dosage: 50 MG 50 TABLETS
     Route: 048
     Dates: start: 202405
  4. Deprax [Concomitant]
     Indication: Major depression
     Dosage: 100 MG EFG FILM-COATED TABLETS, 30 TABLETS
     Dates: start: 202407
  5. Prisdal [Concomitant]
     Indication: Major depression
     Dosage: 20 MG FILM-COATED TABLETS, 28 TABLETS
     Dates: start: 202407

REACTIONS (2)
  - Abortion spontaneous [Unknown]
  - Maternal exposure during pregnancy [Unknown]

NARRATIVE: CASE EVENT DATE: 20250317
